FAERS Safety Report 25555761 (Version 1)
Quarter: 2025Q3

REPORT INFORMATION
  Report Type: Spontaneous
  Country: US (occurrence: None)
  Receive Date: 20250715
  Receipt Date: 20250715
  Transmission Date: 20251020
  Serious: Yes (Death)
  Sender: FDA-CTU
  Company Number: None

PATIENT
  Sex: Male

DRUGS (7)
  1. GOCOVRI [Suspect]
     Active Substance: AMANTADINE
     Indication: Parkinson^s disease
     Route: 048
     Dates: start: 20200130
  2. ASPIRIN [Concomitant]
     Active Substance: ASPIRIN
  3. AZILECT [Concomitant]
     Active Substance: RASAGILINE MESYLATE
  4. MINERALS\VITAMINS [Concomitant]
     Active Substance: MINERALS\VITAMINS
  5. MOBIC [Concomitant]
     Active Substance: MELOXICAM
  6. ROPINIROLE [Concomitant]
     Active Substance: ROPINIROLE
  7. SI NEMET CR [Concomitant]

REACTIONS (1)
  - Death [None]
